FAERS Safety Report 19933383 (Version 2)
Quarter: 2021Q4

REPORT INFORMATION
  Report Type: Spontaneous
  Country: MX (occurrence: MX)
  Receive Date: 20211008
  Receipt Date: 20211209
  Transmission Date: 20220303
  Serious: No
  Sender: FDA-Public Use
  Company Number: MX-PFIZER INC-202101191005

PATIENT
  Age: 13 Year
  Sex: Male

DRUGS (1)
  1. GENOTROPIN [Suspect]
     Active Substance: SOMATROPIN
     Dosage: UNK
     Route: 058
     Dates: start: 20210909

REACTIONS (4)
  - Product prescribing error [Recovering/Resolving]
  - Device breakage [Recovering/Resolving]
  - Device leakage [Recovering/Resolving]
  - Drug dose omission by device [Recovering/Resolving]

NARRATIVE: CASE EVENT DATE: 20210909
